FAERS Safety Report 6328979-1 (Version None)
Quarter: 2009Q3

REPORT INFORMATION
  Report Type: 
  Country: None (occurrence: None)
  Receive Date: 20090826
  Receipt Date: 20090820
  Transmission Date: 20100115
  Serious: No
  Sender: FDA-Public Use
  Company Number: US-JNJFOC-20090807000

PATIENT
  Sex: Female
  Weight: 113.4 kg

DRUGS (10)
  1. FENTANYL TRANSDERMAL SYSTEM [Suspect]
     Indication: PROCTALGIA
     Route: 062
  2. ACIPHEX [Concomitant]
     Indication: HIATUS HERNIA
     Route: 048
  3. CYMBALTA [Concomitant]
     Indication: DEPRESSION
     Route: 048
  4. TYLOX (OXYCODONE AND ACETAMINOPHEN) [Concomitant]
     Indication: PAIN
     Dosage: 5MG-500MG
     Route: 048
  5. NEURONTIN [Concomitant]
     Indication: MORTON'S NEUROMA
     Route: 048
  6. LISINOPRIL [Concomitant]
     Indication: HYPERTENSION
     Route: 048
  7. MEVACOR [Concomitant]
     Indication: BLOOD CHOLESTEROL INCREASED
     Route: 048
  8. LEVOTHYROXINE SODIUM [Concomitant]
     Indication: HYPOTHYROIDISM
     Route: 048
  9. ALPRAZOLAM [Concomitant]
     Indication: ANXIETY
     Route: 048
  10. HYDROXYCHLOROQUINE SULFATE [Concomitant]
     Indication: IMMUNE SYSTEM DISORDER
     Route: 048

REACTIONS (1)
  - WRONG TECHNIQUE IN DRUG USAGE PROCESS [None]
